FAERS Safety Report 5580212-4 (Version None)
Quarter: 2007Q4

REPORT INFORMATION
  Report Type: 
  Country: None (occurrence: None)
  Receive Date: 20071228
  Receipt Date: 20071219
  Transmission Date: 20080405
  Serious: Yes (Other)
  Sender: FDA-Public Use
  Company Number: TUK2007A00144

PATIENT
  Age: 78 Year
  Sex: Male

DRUGS (4)
  1. ACTOS [Suspect]
     Dosage: AUTUMN
     Dates: start: 20050101
  2. CANDESARTAN (CANDESARTAN) [Concomitant]
  3. ATORVASTATIN CALCIUM [Concomitant]
  4. BENDROFLUMETHIAZIDE (BENDROFLUMETHIAZIDE) [Concomitant]

REACTIONS (1)
  - MYELODYSPLASTIC SYNDROME [None]
